FAERS Safety Report 12667226 (Version 1)
Quarter: 2016Q3

REPORT INFORMATION
  Report Type: Spontaneous
  Country: US (occurrence: US)
  Receive Date: 20160819
  Receipt Date: 20160819
  Transmission Date: 20161109
  Serious: Yes (Death, Hospitalization, Other)
  Sender: FDA-Public Use
  Company Number: US-CIPLA LTD.-2016US17326

PATIENT

DRUGS (13)
  1. IRINOTECAN [Suspect]
     Active Substance: IRINOTECAN
     Dosage: UNK, SECOND CYCLE
     Route: 065
  2. IFOSFAMIDE. [Suspect]
     Active Substance: IFOSFAMIDE
     Indication: NEUROENDOCRINE CARCINOMA METASTATIC
     Dosage: UNK
     Route: 065
  3. VINORELBINE [Suspect]
     Active Substance: VINORELBINE\VINORELBINE TARTRATE
     Indication: NEUROENDOCRINE CARCINOMA METASTATIC
     Dosage: UNK
     Route: 065
  4. ACETAMINOPHEN-HYDROCODONE [Concomitant]
     Indication: ABDOMINAL DISCOMFORT
     Dosage: UNK
     Route: 065
  5. ETOPOSIDE. [Suspect]
     Active Substance: ETOPOSIDE
     Indication: NEUROENDOCRINE CARCINOMA METASTATIC
     Dosage: UNK
     Route: 065
  6. CARBOPLATIN. [Suspect]
     Active Substance: CARBOPLATIN
     Dosage: UNK, SECOND CYCLE
     Route: 065
  7. CARBOPLATIN. [Suspect]
     Active Substance: CARBOPLATIN
     Indication: NEUROENDOCRINE CARCINOMA METASTATIC
     Dosage: UNK
     Route: 065
  8. PENICILLIN [Suspect]
     Active Substance: PENICILLIN
     Indication: PROPHYLAXIS
     Dosage: UNK, QD
     Route: 065
  9. IRINOTECAN [Suspect]
     Active Substance: IRINOTECAN
     Indication: NEUROENDOCRINE CARCINOMA METASTATIC
     Dosage: UNK
     Route: 065
  10. PACLITAXEL. [Suspect]
     Active Substance: PACLITAXEL
     Indication: NEUROENDOCRINE CARCINOMA METASTATIC
     Dosage: UNK
     Route: 065
  11. QIZHEN [Suspect]
     Active Substance: HERBALS
     Dosage: UNK
     Route: 065
  12. SULFAMETHOXAZOLE-TRIMETHOPRIM (SMZ) [Suspect]
     Active Substance: SULFAMETHOXAZOLE\TRIMETHOPRIM
     Indication: PROPHYLAXIS
     Dosage: UNK, 3 TIMES A WEEK
     Route: 065
  13. GEMCITABINE [Suspect]
     Active Substance: GEMCITABINE\GEMCITABINE HYDROCHLORIDE
     Indication: NEUROENDOCRINE CARCINOMA METASTATIC
     Dosage: UNK
     Route: 065

REACTIONS (11)
  - Thrombocytopenia [Unknown]
  - Hypersplenism [None]
  - Disease progression [Unknown]
  - Abdominal distension [None]
  - Renal tubular necrosis [None]
  - Death [Fatal]
  - Myeloma cast nephropathy [Unknown]
  - End stage renal disease [Unknown]
  - Constipation [Unknown]
  - Treatment failure [None]
  - Haemodialysis [None]
